FAERS Safety Report 8286196-2 (Version None)
Quarter: 2012Q2

REPORT INFORMATION
  Report Type: 
  Country: None (occurrence: None)
  Receive Date: 20120416
  Receipt Date: 20120409
  Transmission Date: 20120825
  Serious: No
  Sender: FDA-Public Use
  Company Number: US-PFIZER INC-2012089517

PATIENT
  Sex: Female
  Weight: 83.9 kg

DRUGS (4)
  1. PRISTIQ [Suspect]
     Dosage: SPLITTING THE 50MG TABLET IN HALF
     Route: 048
  2. IMITREX [Concomitant]
     Indication: MIGRAINE
     Dosage: UNK
  3. PRISTIQ [Suspect]
     Indication: DEPRESSION
     Dosage: 50 MG, DAILY
     Route: 048
     Dates: start: 20100101
  4. NORTRIPTYLINE HCL [Suspect]
     Indication: MIGRAINE
     Dosage: UNK

REACTIONS (10)
  - NAUSEA [None]
  - DRUG INEFFECTIVE [None]
  - WRONG TECHNIQUE IN DRUG USAGE PROCESS [None]
  - DIZZINESS [None]
  - NERVOUSNESS [None]
  - WITHDRAWAL SYNDROME [None]
  - HEADACHE [None]
  - COLD SWEAT [None]
  - CHILLS [None]
  - DRUG DOSE OMISSION [None]
